FAERS Safety Report 9648761 (Version 3)
Quarter: 2013Q4

REPORT INFORMATION
  Report Type: Spontaneous
  Country: US (occurrence: US)
  Receive Date: 20131028
  Receipt Date: 20131110
  Transmission Date: 20140711
  Serious: Yes (Hospitalization)
  Sender: FDA-Public Use
  Company Number: US-ENDO PHARMACEUTICALS INC.-HCDA20130028

PATIENT
  Age: 51 Year
  Sex: Female

DRUGS (2)
  1. HYDROCODONE/ACETAMINOPHEN 10MG/500MG [Suspect]
     Indication: PAIN
     Dosage: 40MG/2000MG
     Route: 048
     Dates: end: 20121207
  2. HYDROCODONE/ACETAMINOPHEN 7.5MG/500MG [Concomitant]
     Indication: PAIN
     Dosage: UNK
     Route: 048
     Dates: start: 1999

REACTIONS (6)
  - Pathological fracture [Unknown]
  - Muscle spasms [Unknown]
  - Thoracic vertebral fracture [Unknown]
  - Arteriosclerosis [Unknown]
  - Hepatic enzyme increased [Unknown]
  - Drug ineffective [Recovered/Resolved]
